FAERS Safety Report 20590288 (Version 2)
Quarter: 2022Q2

REPORT INFORMATION
  Report Type: Spontaneous
  Country: DE (occurrence: DE)
  Receive Date: 20220314
  Receipt Date: 20220401
  Transmission Date: 20220721
  Serious: Yes (Hospitalization, Other)
  Sender: FDA-Public Use
  Company Number: DE-CHEPLA-2022000747

PATIENT
  Age: 83 Year
  Sex: Male

DRUGS (15)
  1. TAMSULOSIN [Suspect]
     Active Substance: TAMSULOSIN
     Dosage: 1 DOSAGE FORMS DAILY; 0-0-1
     Route: 065
     Dates: end: 20220205
  2. FINASTERIDE [Suspect]
     Active Substance: FINASTERIDE
     Dosage: 1 DOSAGE FORMS DAILY; 1-0-0; FINASTERID 5 MG
     Route: 065
     Dates: end: 20220205
  3. SIMVASTATIN [Suspect]
     Active Substance: SIMVASTATIN
     Dosage: 1 DOSAGE FORMS DAILY; 0-0-1; SIMVASTATIN 40 MG
     Route: 065
     Dates: end: 20220205
  4. ALLOPURINOL [Suspect]
     Active Substance: ALLOPURINOL
     Dosage: 1 DOSAGE FORMS DAILY; 0-0-1; ALLOPURINOL 150 MG
     Route: 065
     Dates: end: 20220205
  5. BICALUTAMIDE [Suspect]
     Active Substance: BICALUTAMIDE
     Dosage: 20 DAYS UNTIL 2022-02-01
     Route: 065
     Dates: end: 20220201
  6. BUSERELIN [Suspect]
     Active Substance: BUSERELIN
     Dosage: 9.5 MG
     Route: 058
     Dates: start: 20220128
  7. FELODIPINE [Concomitant]
     Active Substance: FELODIPINE
     Dosage: .5 DOSAGE FORMS DAILY; 0-0-0,5; FELODIPIN 2,5 MG
     Route: 065
  8. CYCLOSPORINE [Concomitant]
     Active Substance: CYCLOSPORINE
     Dosage: 2 DOSAGE FORMS DAILY; 1-0-1; CICLOSPORIN 50 MG
     Route: 065
  9. METAMIZOLE [Concomitant]
     Active Substance: METAMIZOLE
     Dosage: 3 DOSAGE FORMS DAILY; 1-1-1; NOVALGIN 500 MG
     Route: 065
  10. BISOPROLOL [Concomitant]
     Active Substance: BISOPROLOL
     Dosage: 2 DOSAGE FORMS DAILY; 1-0-1; BISOPROLOL 1,25 MG
     Route: 065
  11. MARCUMAR [Concomitant]
     Active Substance: PHENPROCOUMON
     Dosage: 1 DOSAGE FORMS DAILY; 1-0-0
     Route: 065
  12. CHOLECALCIFEROL [Concomitant]
     Active Substance: CHOLECALCIFEROL
     Dosage: 20000 IU ONCE A WEEK; DEKRISTOL 20000 IE
     Route: 065
  13. PREDNISOLONE [Concomitant]
     Active Substance: PREDNISOLONE
     Dosage: 1 DOSAGE FORMS DAILY; 1-0-0; PREDNISOLON 5 MG
     Route: 065
  14. TORSEMIDE [Concomitant]
     Active Substance: TORSEMIDE
     Dosage: 2 DOSAGE FORMS DAILY; 1-1-0; TORASEMID 10 MG
     Route: 065
  15. ERYTHROPOIETIN [Concomitant]
     Active Substance: ERYTHROPOIETIN
     Dosage: 3000 IU ONCE A WEEK; EPO 3000 IE
     Route: 065

REACTIONS (9)
  - Muscular weakness [Not Recovered/Not Resolved]
  - Muscular weakness [Not Recovered/Not Resolved]
  - Product prescribing error [Unknown]
  - Blood creatine phosphokinase increased [Unknown]
  - Gamma-glutamyltransferase increased [Unknown]
  - Aspartate aminotransferase increased [Unknown]
  - Alanine aminotransferase increased [Unknown]
  - Pyrexia [Recovered/Resolved]
  - Blood lactate dehydrogenase increased [Unknown]

NARRATIVE: CASE EVENT DATE: 20220128
